FAERS Safety Report 4523555-5 (Version None)
Quarter: 2004Q4

REPORT INFORMATION
  Report Type: 
  Country: None (occurrence: None)
  Receive Date: 20041210
  Receipt Date: 20041201
  Transmission Date: 20050328
  Serious: Yes (Hospitalization)
  Sender: FDA-Public Use
  Company Number: IT-ROCHE-387623

PATIENT
  Age: 36 Year
  Sex: Female

DRUGS (5)
  1. PEGASYS [Suspect]
     Dosage: FORMULATION REPORTED AS: VIAL
     Route: 058
     Dates: start: 20040312, end: 20041125
  2. RIBAVIRIN [Concomitant]
     Route: 048
     Dates: start: 20040312, end: 20041125
  3. ZERIT [Concomitant]
     Indication: HIV INFECTION
  4. EPIVIR [Concomitant]
     Indication: HIV INFECTION
  5. SUSTIVA [Concomitant]
     Indication: HIV INFECTION

REACTIONS (1)
  - NECK PAIN [None]
